FAERS Safety Report 9903026 (Version 3)
Quarter: 2014Q2

REPORT INFORMATION
  Report Type: Report from Study
  Country: BR (occurrence: BR)
  Receive Date: 20140217
  Receipt Date: 20140619
  Transmission Date: 20141212
  Serious: Yes (Hospitalization, Disabling)
  Sender: FDA-Public Use
  Company Number: PHHO2014BR001908

PATIENT
  Age: 57 Year
  Sex: Male
  Weight: 73.4 kg

DRUGS (2)
  1. AMN107 [Suspect]
     Indication: CHRONIC MYELOID LEUKAEMIA
     Dosage: 400 MG, BID
     Route: 048
     Dates: start: 20080121, end: 20140203
  2. AMN107 [Suspect]
     Dosage: UNK
     Dates: start: 20140206

REACTIONS (1)
  - Musculoskeletal pain [Recovering/Resolving]
